FAERS Safety Report 5750852-8 (Version None)
Quarter: 2008Q2

REPORT INFORMATION
  Report Type: 
  Country: None (occurrence: None)
  Receive Date: 20080528
  Receipt Date: 20080528
  Transmission Date: 20081010
  Serious: Yes (Other)
  Sender: FDA-Public Use
  Company Number: B0521577A

PATIENT
  Age: 47 Year
  Sex: Male

DRUGS (5)
  1. ACYCLOVIR SODIUM [Suspect]
     Dosage: 1500MG PER DAY
     Route: 042
  2. VALACYCLOVIR [Suspect]
     Dosage: 1500MG PER DAY
     Route: 048
  3. GANCICLOVIR [Suspect]
     Dosage: 1800MG PER DAY
     Route: 048
  4. HIV TREATMENTS (UNSPECIFIED) [Concomitant]
     Indication: HIV INFECTION
  5. BETAMETHASONE [Concomitant]
     Route: 047

REACTIONS (3)
  - DRUG INEFFECTIVE [None]
  - LIVER DISORDER [None]
  - WHITE BLOOD CELL COUNT DECREASED [None]
